FAERS Safety Report 7594258-8 (Version None)
Quarter: 2011Q3

REPORT INFORMATION
  Report Type: 
  Country: None (occurrence: None)
  Receive Date: 20110706
  Receipt Date: 20110706
  Transmission Date: 20111222
  Serious: Yes (Death, Life-Threatening, Hospitalization, Disabling, Congenital Anomaly, Other)
  Sender: FDA-Public Use
  Company Number: None

PATIENT
  Age: 45 Year
  Sex: Female
  Weight: 156.6 kg

DRUGS (1)
  1. LINEZOLID [Suspect]
     Indication: INFECTION
     Dosage: 600MG
     Route: 042
     Dates: start: 20110610, end: 20110620

REACTIONS (1)
  - PLATELET COUNT DECREASED [None]
